FAERS Safety Report 4765246-1 (Version None)
Quarter: 2005Q3

REPORT INFORMATION
  Report Type: 
  Country: None (occurrence: None)
  Receive Date: 20050909
  Receipt Date: 20050824
  Transmission Date: 20060218
  Serious: Yes (Hospitalization)
  Sender: FDA-Public Use
  Company Number: NZ-MERCK-0508NZL00022

PATIENT
  Age: 61 Year
  Sex: Male

DRUGS (10)
  1. ZOCOR [Suspect]
     Indication: BLOOD CHOLESTEROL INCREASED
     Route: 048
     Dates: start: 20050701, end: 20050729
  2. ZOCOR [Suspect]
     Route: 048
     Dates: end: 20050601
  3. WARFARIN [Suspect]
     Route: 065
  4. AMIODARONE [Concomitant]
     Indication: ATRIAL FIBRILLATION
     Route: 065
     Dates: start: 20050701
  5. METOPROLOL [Concomitant]
     Route: 065
  6. QUINAPRIL HYDROCHLORIDE [Concomitant]
     Route: 048
  7. DILTIAZEM HYDROCHLORIDE [Concomitant]
     Route: 065
  8. DIGOXIN [Concomitant]
     Route: 048
  9. PANTOPRAZOLE SODIUM [Concomitant]
     Route: 065
  10. FUROSEMIDE [Concomitant]
     Route: 065

REACTIONS (5)
  - ASTHENIA [None]
  - BLOOD CREATINE PHOSPHOKINASE INCREASED [None]
  - BLOOD URINE PRESENT [None]
  - LEFT VENTRICULAR FAILURE [None]
  - MYALGIA [None]
